FAERS Safety Report 8337483-0 (Version None)
Quarter: 2012Q2

REPORT INFORMATION
  Report Type: 
  Country: None (occurrence: None)
  Receive Date: 20120504
  Receipt Date: 19910318
  Transmission Date: 20120825
  Serious: Yes (Other)
  Sender: FDA-Public Use
  Company Number: FR-ROCHE-16573

PATIENT
  Age: 46 Year
  Sex: Female

DRUGS (3)
  1. TICLID [Suspect]
     Indication: THROMBOSIS
     Route: 048
     Dates: start: 19800701, end: 19801014
  2. HEPARIN [Concomitant]
  3. CYCLANDELATE [Concomitant]

REACTIONS (4)
  - PYREXIA [None]
  - BONE MARROW FAILURE [None]
  - LOCALISED INFECTION [None]
  - AGRANULOCYTOSIS [None]
